FAERS Safety Report 20209073 (Version 3)
Quarter: 2022Q3

REPORT INFORMATION
  Report Type: Report from Study
  Country: JP (occurrence: JP)
  Receive Date: 20211220
  Receipt Date: 20220921
  Transmission Date: 20221027
  Serious: Yes (Other)
  Sender: FDA-Public Use
  Company Number: JP-NAPPMUNDI-GBR-2021-0092753

PATIENT
  Age: 80 Year
  Sex: Male

DRUGS (18)
  1. OXYCONTIN [Suspect]
     Active Substance: OXYCODONE HYDROCHLORIDE
     Indication: Product used for unknown indication
     Dosage: UNK
     Route: 048
  2. OXYCONTIN [Suspect]
     Active Substance: OXYCODONE HYDROCHLORIDE
     Dosage: 10 MG, DAILY
     Route: 048
  3. OXYCONTIN [Suspect]
     Active Substance: OXYCODONE HYDROCHLORIDE
     Dosage: 20 MG, DAILY
     Route: 048
  4. OXYCONTIN [Suspect]
     Active Substance: OXYCODONE HYDROCHLORIDE
     Dosage: 5 MILLIGRAM, Q12H
     Route: 048
     Dates: start: 20211211
  5. OXYCONTIN [Suspect]
     Active Substance: OXYCODONE HYDROCHLORIDE
     Dosage: 10 MILLIGRAM, Q12H
     Route: 048
     Dates: start: 20211106, end: 20211210
  6. OXYCONTIN [Suspect]
     Active Substance: OXYCODONE HYDROCHLORIDE
     Dosage: 5 MILLIGRAM, Q12H
     Route: 048
     Dates: start: 20211023, end: 20211105
  7. SYMPROIC [Concomitant]
     Active Substance: NALDEMEDINE
     Indication: Constipation
     Dosage: UNK
  8. SYMPROIC [Concomitant]
     Active Substance: NALDEMEDINE
     Route: 065
  9. SYMPROIC [Concomitant]
     Active Substance: NALDEMEDINE
     Dosage: UNK
  10. CALONAL [Concomitant]
     Active Substance: ACETAMINOPHEN
     Indication: Pain
     Dosage: UNK
     Dates: start: 20220122
  11. TRELEGY ELLIPTA [Concomitant]
     Active Substance: FLUTICASONE FUROATE\UMECLIDINIUM BROMIDE\VILANTEROL TRIFENATATE
     Indication: Product used for unknown indication
     Dosage: UNK
     Dates: end: 20220207
  12. NIFEDIPINE [Concomitant]
     Active Substance: NIFEDIPINE
     Indication: Product used for unknown indication
     Dosage: UNK
  13. JANUVIA [Concomitant]
     Active Substance: SITAGLIPTIN PHOSPHATE
     Indication: Product used for unknown indication
     Dosage: UNK
  14. CYTOTEC [Concomitant]
     Active Substance: MISOPROSTOL
     Indication: Product used for unknown indication
     Dosage: UNK
  15. ACETAMINOPHEN [Concomitant]
     Active Substance: ACETAMINOPHEN
     Indication: Pain
     Dosage: UNK
     Dates: start: 20211023, end: 20220121
  16. MAGNESIUM OXIDE [Concomitant]
     Active Substance: MAGNESIUM OXIDE
     Indication: Prophylaxis
     Dosage: UNK
     Dates: start: 20211023
  17. Novamin [Concomitant]
     Indication: Prophylaxis
     Dosage: UNK
     Dates: start: 20211023, end: 20211126
  18. FLUVOXAMINE MALEATE [Concomitant]
     Active Substance: FLUVOXAMINE MALEATE
     Indication: Depressive symptom
     Dosage: UNK
     Dates: start: 20211113

REACTIONS (7)
  - Delirium [Recovered/Resolved]
  - Constipation [Unknown]
  - Dementia [Unknown]
  - Memory impairment [Unknown]
  - Depressive symptom [Recovering/Resolving]
  - Fall [Recovering/Resolving]
  - Back pain [Recovering/Resolving]

NARRATIVE: CASE EVENT DATE: 20211113
